FAERS Safety Report 5797517-4 (Version None)
Quarter: 2008Q3

REPORT INFORMATION
  Report Type: 
  Country: None (occurrence: None)
  Receive Date: 20080702
  Receipt Date: 20080626
  Transmission Date: 20090109
  Serious: Yes (Other)
  Sender: FDA-Public Use
  Company Number: US-RANBAXY-2008RR-15835

PATIENT

DRUGS (4)
  1. MINOCYCLINE HYDROCHLORIDE [Suspect]
     Indication: ACNE
     Dosage: 100 MG, QD
  2. LANSOPRAZOLE [Concomitant]
     Dosage: 30 MG, QD
  3. ADAPALENE [Concomitant]
     Indication: ACNE
     Route: 061
  4. AZITHROMYCIN [Concomitant]
     Dosage: UNK
     Route: 048

REACTIONS (3)
  - FATIGUE [None]
  - PYREXIA [None]
  - WEIGHT DECREASED [None]
